FAERS Safety Report 6333724-X (Version None)
Quarter: 2009Q3

REPORT INFORMATION
  Report Type: 
  Country: None (occurrence: None)
  Receive Date: 20090829
  Receipt Date: 20090603
  Transmission Date: 20100115
  Serious: No
  Sender: FDA-Public Use
  Company Number: US-ABBOTT-09P-163-0577786-00

PATIENT
  Sex: Female
  Weight: 70.37 kg

DRUGS (1)
  1. SIMCOR [Suspect]
     Indication: BLOOD CHOLESTEROL INCREASED
     Dates: start: 20090501, end: 20090501

REACTIONS (3)
  - CONTUSION [None]
  - SKIN DISCOLOURATION [None]
  - VEIN DISORDER [None]
